FAERS Safety Report 9213842 (Version 1)
Quarter: 2013Q2

REPORT INFORMATION
  Report Type: Spontaneous
  Country: US (occurrence: US)
  Receive Date: 20130405
  Receipt Date: 20130405
  Transmission Date: 20140414
  Serious: No
  Sender: FDA-Public Use
  Company Number: US-ASTRAZENECA-2004UW15208

PATIENT
  Age: 76 Year
  Sex: Female
  Weight: 81.6 kg

DRUGS (4)
  1. CRESTOR [Suspect]
     Indication: BLOOD CHOLESTEROL INCREASED
     Route: 048
     Dates: start: 200310
  2. CRESTOR [Suspect]
     Indication: BLOOD CHOLESTEROL INCREASED
     Route: 048
     Dates: end: 2013
  3. ASPIRIN [Concomitant]
  4. FOLIC ACID [Concomitant]

REACTIONS (5)
  - Urinary retention [Unknown]
  - Pain [Unknown]
  - Polyuria [Unknown]
  - Myalgia [Unknown]
  - Drug dose omission [Unknown]
